FAERS Safety Report 14708283 (Version 1)
Quarter: 2018Q2

REPORT INFORMATION
  Report Type: Spontaneous
  Country: US (occurrence: US)
  Receive Date: 20180403
  Receipt Date: 20180403
  Transmission Date: 20180711
  Serious: No
  Sender: FDA-Public Use
  Company Number: US-PFIZER INC-2018134077

PATIENT
  Age: 45 Year
  Sex: Female
  Weight: 75.3 kg

DRUGS (1)
  1. COLESTIPOL HCL [Suspect]
     Active Substance: COLESTIPOL HYDROCHLORIDE
     Indication: REFLUX GASTRITIS
     Dosage: 1 G, 2X/DAY (IN MORNING AND 7PM)
     Route: 048
     Dates: start: 20180321, end: 20180323

REACTIONS (4)
  - Product use in unapproved indication [Unknown]
  - Drug prescribing error [Unknown]
  - Abdominal discomfort [Recovering/Resolving]
  - Flatulence [Recovering/Resolving]

NARRATIVE: CASE EVENT DATE: 20180321
